FAERS Safety Report 5804090-0 (Version None)
Quarter: 2008Q3

REPORT INFORMATION
  Report Type: 
  Country: None (occurrence: None)
  Receive Date: 20080709
  Receipt Date: 20080630
  Transmission Date: 20090109
  Serious: Yes (Hospitalization, Other)
  Sender: FDA-Public Use
  Company Number: BR-BAYER-200815550LA

PATIENT
  Age: 34 Year
  Sex: Female
  Weight: 63 kg

DRUGS (3)
  1. MIRENA [Suspect]
     Indication: CONTRACEPTION
     Route: 015
     Dates: start: 20071204
  2. TOLREST [Concomitant]
     Indication: DEPRESSION
     Route: 048
     Dates: start: 20080101
  3. PURAN 75 [Concomitant]
     Indication: THYROID DISORDER
     Route: 048
     Dates: start: 20060701

REACTIONS (8)
  - ACNE [None]
  - ALOPECIA [None]
  - CONSTIPATION [None]
  - GENITAL HAEMORRHAGE [None]
  - HEADACHE [None]
  - IUCD COMPLICATION [None]
  - LOSS OF CONSCIOUSNESS [None]
  - PELVIC PAIN [None]
